FAERS Safety Report 4976932-2 (Version None)
Quarter: 2006Q2

REPORT INFORMATION
  Report Type: 
  Country: None (occurrence: None)
  Receive Date: 20060413
  Receipt Date: 20060404
  Transmission Date: 20061013
  Serious: Yes (Death, Other)
  Sender: FDA-Public Use
  Company Number: 163-20785-06030306

PATIENT
  Age: 77 Year
  Sex: Female

DRUGS (11)
  1. THALOMID [Suspect]
     Indication: MULTIPLE MYELOMA
     Dosage: 50 MG, DAILY, ORAL
     Route: 048
     Dates: start: 20050401, end: 20060302
  2. PREDNISONE [Concomitant]
  3. CARDIZEM [Concomitant]
  4. POTASSIUM CHLORIDE [Concomitant]
  5. LASIX [Concomitant]
  6. COLACE (DOCUSATE SODIUM) [Concomitant]
  7. LIPITOR [Concomitant]
  8. CALCIUM GLUCONATE [Concomitant]
  9. FENTANYL [Concomitant]
  10. O2 (OXYGEN) [Concomitant]
  11. LEVAQUIN [Concomitant]

REACTIONS (10)
  - ACUTE RESPIRATORY FAILURE [None]
  - BONE DISORDER [None]
  - CHRONIC OBSTRUCTIVE PULMONARY DISEASE [None]
  - CONDITION AGGRAVATED [None]
  - MULTIPLE MYELOMA [None]
  - PNEUMONIA BACTERIAL [None]
  - PULMONARY CONGESTION [None]
  - RESPIRATORY DISTRESS [None]
  - SPINAL COMPRESSION FRACTURE [None]
  - TOTAL LUNG CAPACITY DECREASED [None]
